FAERS Safety Report 4536904-9 (Version None)
Quarter: 2004Q4

REPORT INFORMATION
  Report Type: 
  Country: None (occurrence: None)
  Receive Date: 20041220
  Receipt Date: 20041206
  Transmission Date: 20050328
  Serious: Yes (Death, Hospitalization)
  Sender: FDA-Public Use
  Company Number: 2004-BP-13256BP

PATIENT
  Sex: Male

DRUGS (3)
  1. AGGRENOX [Suspect]
     Indication: CEREBROVASCULAR ACCIDENT PROPHYLAXIS
     Dosage: SEE TEXT (SEE TEXT, 25MG/200MG (1 CAPSULE BID)), PO
     Route: 048
     Dates: start: 20040701
  2. NORVASC [Concomitant]
  3. LIPITOR [Concomitant]

REACTIONS (1)
  - THROMBOTIC THROMBOCYTOPENIC PURPURA [None]
